FAERS Safety Report 20247019 (Version 1)
Quarter: 2021Q4

REPORT INFORMATION
  Report Type: Spontaneous
  Country: US (occurrence: None)
  Receive Date: 20211228
  Receipt Date: 20211228
  Transmission Date: 20220303
  Serious: No
  Sender: FDA-Public Use
  Company Number: None

PATIENT
  Sex: Female

DRUGS (1)
  1. FORTEO [Suspect]
     Active Substance: TERIPARATIDE
     Indication: Osteoporosis
     Dosage: OTHER STRENGTH : 250MCG/ML;?FREQUENCY : DAILY;?
     Route: 058
     Dates: start: 20200925

REACTIONS (3)
  - Myalgia [None]
  - Arthralgia [None]
  - Condition aggravated [None]
